FAERS Safety Report 4544895-X (Version None)
Quarter: 2005Q1

REPORT INFORMATION
  Report Type: 
  Country: None (occurrence: None)
  Receive Date: 20050104
  Receipt Date: 20041222
  Transmission Date: 20050727
  Serious: Yes (Death, Life-Threatening)
  Sender: FDA-Public Use
  Company Number: WAES 0412USA03081

PATIENT
  Sex: Female

DRUGS (5)
  1. COSMEGEN [Suspect]
     Indication: GESTATIONAL TROPHOBLASTIC TUMOUR
     Dosage: 500 MICROGM/DAILY IV
     Route: 042
     Dates: start: 20001201
  2. CISPLATIN [Concomitant]
  3. ETOPOSIDE [Concomitant]
  4. FOLINIC ACID [Concomitant]
  5. METHOTREXATE [Concomitant]

REACTIONS (5)
  - BONE MARROW DEPRESSION [None]
  - DRUG EXPOSURE DURING PREGNANCY [None]
  - GASTROINTESTINAL DISORDER [None]
  - METASTASES TO LUNG [None]
  - URINE HUMAN CHORIONIC GONADOTROPIN INCREASED [None]
